FAERS Safety Report 5738924-5 (Version None)
Quarter: 2008Q2

REPORT INFORMATION
  Report Type: 
  Country: None (occurrence: None)
  Receive Date: 20080515
  Receipt Date: 20080508
  Transmission Date: 20081010
  Serious: Yes (Hospitalization)
  Sender: FDA-Public Use
  Company Number: US-ROCHE-563361

PATIENT
  Sex: Female
  Weight: 72.1 kg

DRUGS (3)
  1. PEG-INTERFERON A-2A (RO 25-8310) [Suspect]
     Dosage: PATIENT ON PEGASYS PFS.
     Route: 065
     Dates: start: 20080309, end: 20080427
  2. RIBAVIRIN [Suspect]
     Route: 048
     Dates: start: 20080309, end: 20080427
  3. ATENOLOL [Concomitant]
     Indication: HYPERTENSION
     Route: 065

REACTIONS (7)
  - ANAEMIA [None]
  - ANOREXIA [None]
  - DYSGEUSIA [None]
  - FATIGUE [None]
  - NAUSEA [None]
  - PALPITATIONS [None]
  - SYNCOPE [None]
